FAERS Safety Report 24240188 (Version 2)
Quarter: 2024Q3

REPORT INFORMATION
  Report Type: Spontaneous
  Country: IT (occurrence: IT)
  Receive Date: 20240822
  Receipt Date: 20240914
  Transmission Date: 20241016
  Serious: Yes (Other)
  Sender: SANDOZ
  Company Number: IT-AMGEN-ITASP2024154965

PATIENT
  Sex: Female

DRUGS (2)
  1. ADALIMUMAB [Suspect]
     Active Substance: ADALIMUMAB
     Indication: Psoriasis
     Dosage: UNK
     Route: 065
  2. ADALIMUMAB [Suspect]
     Active Substance: ADALIMUMAB
     Indication: Psoriasis
     Dosage: UNK
     Route: 065

REACTIONS (42)
  - Benign hydatidiform mole [Unknown]
  - Traumatic delivery [Unknown]
  - Haemorrhage in pregnancy [Unknown]
  - Neoplasm malignant [Unknown]
  - Gestational diabetes [Unknown]
  - Renal disorder [Unknown]
  - Gastrointestinal disorder [Unknown]
  - Discomfort [Unknown]
  - Lymphatic disorder [Unknown]
  - Breast disorder [Unknown]
  - Immune system disorder [Unknown]
  - Respiratory disorder [Unknown]
  - Benign neoplasm [Unknown]
  - Connective tissue disorder [Unknown]
  - Malnutrition [Unknown]
  - Cardiac disorder [Unknown]
  - Mental disorder [Unknown]
  - Ear disorder [Unknown]
  - Hepatobiliary disease [Unknown]
  - Reproductive tract disorder [Unknown]
  - Eye disorder [Unknown]
  - Inner ear disorder [Unknown]
  - Metabolic disorder [Unknown]
  - Infestation [Unknown]
  - Urinary tract disorder [Unknown]
  - Angiopathy [Unknown]
  - Amniorrhoea [Unknown]
  - Skin disorder [Unknown]
  - Blood disorder [Unknown]
  - Musculoskeletal disorder [Unknown]
  - Umbilical cord abnormality [Unknown]
  - Prolonged labour [Unknown]
  - Nervous system disorder [Unknown]
  - Endocrine disorder [Unknown]
  - Umbilical cord around neck [Unknown]
  - Caesarean section [Unknown]
  - Gestational hypertension [Unknown]
  - Premature delivery [Unknown]
  - Breech presentation [Unknown]
  - Pre-eclampsia [Unknown]
  - Infection [Unknown]
  - Maternal exposure during pregnancy [Unknown]
